FAERS Safety Report 24453548 (Version 2)
Quarter: 2024Q4

REPORT INFORMATION
  Report Type: Report from Study
  Country: CA (occurrence: CA)
  Receive Date: 20241017
  Receipt Date: 20241018
  Transmission Date: 20250115
  Serious: No
  Sender: ROCHE
  Company Number: CA-ROCHE-3283785

PATIENT
  Sex: Male

DRUGS (3)
  1. RITUXAN [Suspect]
     Active Substance: RITUXIMAB
     Indication: Mantle cell lymphoma stage III
     Dosage: MOREDOSAGEINFO IS NOT THROUGH RPAP- PART OF RDHAP + RCHOP
     Route: 041
     Dates: end: 202002
  2. RITUXAN [Suspect]
     Active Substance: RITUXIMAB
     Indication: Mantle cell lymphoma stage III
     Dosage: DRUG DOSE FIRST ADMINISTERED IS 1400MG MG MILLIGRAM(S)MOREDOSAGEINFO IS NOT THROUGH RPAP- PART OF RD
     Route: 058
     Dates: start: 20230210, end: 2023
  3. RITUXAN [Suspect]
     Active Substance: RITUXIMAB
     Indication: Mantle cell lymphoma stage III
     Dosage: NO PIRS RECEIVED. DOSE NOTED ACCORDING TO?PRESCRIPTION
     Route: 058
     Dates: start: 20230901

REACTIONS (3)
  - Sinusitis [Not Recovered/Not Resolved]
  - Chronic sinusitis [Not Recovered/Not Resolved]
  - Off label use [Unknown]
